FAERS Safety Report 21922041 (Version 1)
Quarter: 2023Q1

REPORT INFORMATION
  Report Type: Report from Study
  Country: AT (occurrence: AT)
  Receive Date: 20230127
  Receipt Date: 20230127
  Transmission Date: 20230417
  Serious: Yes (Hospitalization, Other)
  Sender: FDA-Public Use
  Company Number: AT-CELLTRION INC.-2022AT017793

PATIENT

DRUGS (54)
  1. TRASTUZUMAB [Suspect]
     Active Substance: TRASTUZUMAB
     Indication: HER2 positive breast cancer
     Dosage: 6 MILLIGRAM/KILOGRAM EVERY 3 WEEKS; MOST RECENT DOSE: 12/SEP/2019
     Route: 042
     Dates: start: 20190724
  2. CAPECITABINE [Suspect]
     Active Substance: CAPECITABINE
     Indication: HER2 positive breast cancer
     Dosage: 500 MILLIGRAM
     Route: 048
     Dates: start: 20200923, end: 20201220
  3. CAPECITABINE [Suspect]
     Active Substance: CAPECITABINE
     Dosage: 500 MG, EVERY 4 DAYS; MOST RECENT DOSE PRIOR TO AE 09/DEC/2021
     Route: 048
     Dates: start: 20210109
  4. LAPATINIB [Suspect]
     Active Substance: LAPATINIB
     Indication: HER2 positive breast cancer
     Dosage: MOST RECENT DOSE PRIOR TO THE EVENT: 28/DEC/2020 AND 09/JAN/2021
     Route: 048
     Dates: start: 20200923, end: 20201228
  5. LAPATINIB [Suspect]
     Active Substance: LAPATINIB
     Dosage: 250 MG; EVERY 0.25 DAY
     Route: 048
     Dates: start: 20210109
  6. PACLITAXEL [Suspect]
     Active Substance: PACLITAXEL
     Indication: HER2 positive breast cancer
     Dosage: 260 MILLIGRAM/SQ. METER EVERY 3 WEEKS; MOST RECENT DOSE: 12/SEP/2019
     Route: 042
     Dates: start: 20190724
  7. PERTUZUMAB [Suspect]
     Active Substance: PERTUZUMAB
     Indication: HER2 positive breast cancer
     Dosage: EVERY 3  WEEKS; MOST RECENT DOSE: 12/SEP/2019
     Route: 042
     Dates: start: 20190724
  8. FAM-TRASTUZUMAB DERUXTECAN-NXKI [Suspect]
     Active Substance: FAM-TRASTUZUMAB DERUXTECAN-NXKI
     Indication: HER2 positive breast cancer
     Dosage: EVERY 3 WEEKS (MOST RECENT DOSE PRIOR TO AE 31/JAN/2022)
     Route: 042
     Dates: start: 20220110
  9. ADO-TRASTUZUMAB EMTANSINE [Suspect]
     Active Substance: ADO-TRASTUZUMAB EMTANSINE
     Indication: HER2 positive breast cancer
     Dosage: 2.88 MG/KG EVERY 3 WEEKS; MOST RECENT DOSE PRIOR TO THE EVENT: 03/JUL/2020
     Route: 042
     Dates: start: 20200703
  10. ADO-TRASTUZUMAB EMTANSINE [Suspect]
     Active Substance: ADO-TRASTUZUMAB EMTANSINE
     Dosage: 3.6 MILLIGRAM/KILOGRAM; EVERY 3 WEEKS
     Route: 042
     Dates: start: 20191014, end: 20200518
  11. DRONABINOL [Concomitant]
     Active Substance: DRONABINOL
     Dosage: 2.5 PERCENT
     Dates: start: 20190716, end: 20210804
  12. DRONABINOL [Concomitant]
     Active Substance: DRONABINOL
     Dosage: 2.5 PERCENT, ONGOING = CHECKED
     Dates: start: 20210705
  13. DEXAMETHASONE [Concomitant]
     Active Substance: DEXAMETHASONE
     Dosage: UNK
     Dates: start: 20220110
  14. DEXAMETHASONE [Concomitant]
     Active Substance: DEXAMETHASONE
     Dosage: UNK
     Dates: start: 20220115, end: 20220323
  15. DEXAMETHASONE [Concomitant]
     Active Substance: DEXAMETHASONE
     Dosage: UNK
     Dates: start: 20220113, end: 20220114
  16. DEXAMETHASONE [Concomitant]
     Active Substance: DEXAMETHASONE
     Dosage: 6 MG, QD, ONGOING = CHECKED
     Dates: start: 20210302, end: 20210304
  17. DEXAMETHASONE [Concomitant]
     Active Substance: DEXAMETHASONE
     Dosage: 8 MG
     Dates: start: 20190704, end: 20190912
  18. DEXAMETHASONE [Concomitant]
     Active Substance: DEXAMETHASONE
     Dosage: UNK
     Dates: start: 20220111, end: 20220112
  19. DEXAMETHASONE [Concomitant]
     Active Substance: DEXAMETHASONE
     Dosage: 8 MG, ONGOING = CHECKED
     Dates: start: 20190705, end: 20190917
  20. EMEND [Concomitant]
     Active Substance: APREPITANT
     Dosage: ONGOING = CHECKED
     Dates: start: 20220621
  21. EMEND [Concomitant]
     Active Substance: APREPITANT
     Dosage: ONGOING = CHECKED
     Dates: start: 20220621
  22. LOPERAMIDE HYDROCHLORIDE [Concomitant]
     Active Substance: LOPERAMIDE HYDROCHLORIDE
     Indication: Diarrhoea
     Dosage: ONGOING = CHECKED
     Dates: start: 20210215
  23. ACETAMINOPHEN [Concomitant]
     Active Substance: ACETAMINOPHEN
     Dosage: 500 MG, ONGOING = CHECKED
     Dates: start: 20190701
  24. ALPRAZOLAM [Concomitant]
     Active Substance: ALPRAZOLAM
     Dosage: 0.5 MG, ONGOING = CHECKED
     Dates: start: 20190715
  25. NEULASTA [Concomitant]
     Active Substance: PEGFILGRASTIM
     Dosage: ONGOING = CHECKED
     Dates: start: 20220420
  26. LENDORM [Concomitant]
     Active Substance: BROTIZOLAM
     Indication: Insomnia
     Dosage: 0.25 MG, ONGOING = CHECKED
     Dates: start: 20211229
  27. CEOLAT [Concomitant]
     Dosage: 1 G, ONGOING = CHECKED
     Dates: start: 20190815
  28. SUCRALAN [Concomitant]
     Dosage: 1 G, ONGOING = CHECKED
     Dates: start: 20190701
  29. CITALOPRAM [Concomitant]
     Active Substance: CITALOPRAM HYDROBROMIDE
     Dosage: 20 MG, QD ONGOING = CHECKED
     Dates: start: 20190715
  30. URSODIOL [Concomitant]
     Active Substance: URSODIOL
     Indication: Gamma-glutamyltransferase increased
     Dosage: ONGOING = CHECKED
     Dates: start: 20220401
  31. HYDROMORPHONE HYDROCHLORIDE [Concomitant]
     Active Substance: HYDROMORPHONE HYDROCHLORIDE
     Dosage: 1.3 MG, ONGOING = CHECKED
     Dates: start: 20190716
  32. HYDROMORPHONE HYDROCHLORIDE [Concomitant]
     Active Substance: HYDROMORPHONE HYDROCHLORIDE
     Dosage: ONGOING = CHECKED
     Dates: start: 20220207
  33. HYDROMORPHONE HYDROCHLORIDE [Concomitant]
     Active Substance: HYDROMORPHONE HYDROCHLORIDE
     Dosage: 2 MG, EVERY 0.5 DAY
     Dates: start: 20190716, end: 20200927
  34. HYDROMORPHONE HYDROCHLORIDE [Concomitant]
     Active Substance: HYDROMORPHONE HYDROCHLORIDE
     Dosage: 2 MG, EVERY 0.5 DAY
     Dates: start: 20220207
  35. CALCIDURAN [ASCORBIC ACID;CALCIUM PHOSPHATE;CITRIC ACID;COLECALCIFEROL [Concomitant]
     Dosage: 500 MG, ONGOING = CHECKED
     Dates: start: 20190717
  36. POLYETHYLENE GLYCOL 4000 [Concomitant]
     Active Substance: POLYETHYLENE GLYCOL 4000
     Dosage: 10 G, EVERY 3 DAYS; ONGOING = CHECKED
     Dates: start: 20190705
  37. ZOFRAN [Concomitant]
     Active Substance: ONDANSETRON HYDROCHLORIDE
     Dosage: 8 MG, EVERY 3 WEEKS
     Dates: start: 20220110
  38. ZOFRAN [Concomitant]
     Active Substance: ONDANSETRON HYDROCHLORIDE
     Dosage: 8 MG, ONGOING = CHECKED
     Dates: start: 20190701
  39. ZOFRAN [Concomitant]
     Active Substance: ONDANSETRON HYDROCHLORIDE
     Dosage: 8 MG, EVERY 0.5 DAY
     Dates: start: 20190705, end: 20190914
  40. ZOFRAN [Concomitant]
     Active Substance: ONDANSETRON HYDROCHLORIDE
     Dosage: 4 MG, QD
     Dates: start: 20210302, end: 20210302
  41. ZOFRAN [Concomitant]
     Active Substance: ONDANSETRON HYDROCHLORIDE
     Dosage: 8 MG, ONGOING = CHECKED
     Dates: start: 20190704, end: 20200703
  42. LOVENOX [Concomitant]
     Active Substance: ENOXAPARIN SODIUM
     Dosage: 40 MG, QD
     Dates: start: 20210302, end: 20210305
  43. OLANZAPINE [Concomitant]
     Active Substance: OLANZAPINE
     Dosage: 10 MG
     Dates: start: 20190904, end: 20200926
  44. OLANZAPINE [Concomitant]
     Active Substance: OLANZAPINE
     Dosage: 10 MG
     Dates: start: 20190821, end: 20190904
  45. EUTHYROX [Concomitant]
     Active Substance: LEVOTHYROXINE SODIUM
     Dosage: 25 MICROGRAM, QD
     Dates: start: 20200930, end: 20210108
  46. EUTHYROX [Concomitant]
     Active Substance: LEVOTHYROXINE SODIUM
     Dosage: 75 NANOGRAM, QD
     Dates: start: 201906
  47. EUTHYROX [Concomitant]
     Active Substance: LEVOTHYROXINE SODIUM
     Dosage: 50 MG, QD
     Dates: start: 20190703, end: 20200929
  48. PANTOPRAZOLE SODIUM [Concomitant]
     Active Substance: PANTOPRAZOLE SODIUM
     Dosage: 40 MG, QD
     Dates: start: 20210222, end: 20210302
  49. PANTOPRAZOLE SODIUM [Concomitant]
     Active Substance: PANTOPRAZOLE SODIUM
     Dosage: 40 MG, QD
     Dates: start: 20190701
  50. NEURONTIN [Concomitant]
     Active Substance: GABAPENTIN
     Dosage: 300 MG, EVERY 0.5 DAY
     Dates: start: 201908, end: 201908
  51. TRAZODONE HYDROCHLORIDE [Concomitant]
     Active Substance: TRAZODONE HYDROCHLORIDE
     Dosage: 150 MG, QD
     Dates: start: 20190716, end: 20200926
  52. AMOXICILLIN\CLAVULANATE POTASSIUM [Concomitant]
     Active Substance: AMOXICILLIN\CLAVULANATE POTASSIUM
     Dosage: 875 MG, EVERY 0.5 DAY
     Dates: start: 20200527, end: 20200602
  53. ACETAMINOPHEN [Concomitant]
     Active Substance: ACETAMINOPHEN
     Dosage: 1 G
     Dates: start: 20210302, end: 20210303
  54. VALACYCLOVIR HYDROCHLORIDE [Concomitant]
     Active Substance: VALACYCLOVIR HYDROCHLORIDE
     Dosage: 500 MG, QD
     Dates: start: 20190716, end: 20191011

REACTIONS (5)
  - Iron deficiency anaemia [Recovered/Resolved]
  - Intracranial pressure increased [Recovered/Resolved]
  - Vascular device infection [Recovered/Resolved]
  - Gamma-glutamyltransferase increased [Not Recovered/Not Resolved]
  - Insomnia [Not Recovered/Not Resolved]

NARRATIVE: CASE EVENT DATE: 20211227
